FAERS Safety Report 23602576 (Version 1)
Quarter: 2024Q1

REPORT INFORMATION
  Report Type: Spontaneous
  Country: ES (occurrence: ES)
  Receive Date: 20240306
  Receipt Date: 20240306
  Transmission Date: 20240410
  Serious: Yes (Other)
  Sender: FDA-Public Use
  Company Number: None

PATIENT
  Age: 65 Year
  Sex: Female

DRUGS (3)
  1. TACROLIMUS [Interacting]
     Active Substance: TACROLIMUS
     Indication: Renal transplant
     Dosage: 4.25 MILLIGRAM, QD
     Route: 048
     Dates: start: 2020
  2. AZATHIOPRINE [Interacting]
     Active Substance: AZATHIOPRINE
     Indication: Renal transplant
     Dosage: 75 MILLIGRAM, QD
     Route: 048
     Dates: start: 2020
  3. PREDNISONE [Interacting]
     Active Substance: PREDNISONE
     Indication: Renal transplant
     Dosage: 5 MILLIGRAM, QD
     Route: 048
     Dates: start: 2020

REACTIONS (2)
  - Urinary tract infection pseudomonal [Recovered/Resolved]
  - Drug interaction [Unknown]

NARRATIVE: CASE EVENT DATE: 20240115
